FAERS Safety Report 21356665 (Version 2)
Quarter: 2022Q3

REPORT INFORMATION
  Report Type: Spontaneous
  Country: CL (occurrence: CL)
  Receive Date: 20220920
  Receipt Date: 20220922
  Transmission Date: 20221026
  Serious: Yes (Hospitalization, Other)
  Sender: FDA-Public Use
  Company Number: CL-BoehringerIngelheim-2022-BI-193134

PATIENT
  Age: 80 Year
  Sex: Female

DRUGS (1)
  1. LINAGLIPTIN [Suspect]
     Active Substance: LINAGLIPTIN
     Indication: Diabetes mellitus

REACTIONS (2)
  - Myocardial infarction [Recovered/Resolved]
  - Drug ineffective [Unknown]

NARRATIVE: CASE EVENT DATE: 20220914
